FAERS Safety Report 7539542-9 (Version None)
Quarter: 2011Q2

REPORT INFORMATION
  Report Type: 
  Country: None (occurrence: None)
  Receive Date: 20110610
  Receipt Date: 20110530
  Transmission Date: 20111010
  Serious: Yes (Other)
  Sender: FDA-Public Use
  Company Number: DE-ELI_LILLY_AND_COMPANY-DE201105008266

PATIENT
  Age: 66 Year
  Sex: Female

DRUGS (7)
  1. TARGIN [Concomitant]
     Dosage: UNK, TID
  2. LEVOTHYROXINE SODIUM [Concomitant]
  3. NOVAMINSULFON [Concomitant]
     Dosage: 30 DF, UNK
  4. CALCIGEN D [Concomitant]
  5. PANTOPRAZOLE [Concomitant]
  6. PROCORALAN [Concomitant]
     Dosage: UNK, BID
  7. FORTEO [Suspect]
     Indication: OSTEOPOROSIS
     Dosage: UNK
     Dates: start: 20110405, end: 20110420

REACTIONS (4)
  - WEIGHT DECREASED [None]
  - VOMITING [None]
  - ARRHYTHMIA [None]
  - DEPRESSION [None]
